FAERS Safety Report 7791857-5 (Version None)
Quarter: 2011Q4

REPORT INFORMATION
  Report Type: 
  Country: None (occurrence: None)
  Receive Date: 20111003
  Receipt Date: 20110920
  Transmission Date: 20120403
  Serious: Yes (Other)
  Sender: FDA-Public Use
  Company Number: CA-JNJFOC-20110909770

PATIENT
  Sex: Male

DRUGS (3)
  1. REMICADE [Suspect]
     Route: 042
     Dates: start: 20050101
  2. REMICADE [Suspect]
     Indication: ANKYLOSING SPONDYLITIS
     Route: 042
     Dates: start: 20110301
  3. REMICADE [Suspect]
     Route: 042
     Dates: start: 20110201

REACTIONS (1)
  - SPINAL CORD NEOPLASM [None]
